FAERS Safety Report 17610324 (Version 1)
Quarter: 2020Q2

REPORT INFORMATION
  Report Type: Spontaneous
  Country: US (occurrence: US)
  Receive Date: 20200401
  Receipt Date: 20200401
  Transmission Date: 20200713
  Serious: Yes (Life-Threatening, Hospitalization)
  Sender: FDA-Public Use
  Company Number: US-MYLANLABS-2020M1034128

PATIENT
  Age: 67 Year
  Sex: Male

DRUGS (7)
  1. SEVELAMER [Concomitant]
     Active Substance: SEVELAMER
     Indication: PRODUCT USED FOR UNKNOWN INDICATION
     Route: 065
  2. WARFARIN [Suspect]
     Active Substance: WARFARIN
     Indication: DEEP VEIN THROMBOSIS
     Route: 065
  3. AMITRIPTYLINE [Suspect]
     Active Substance: AMITRIPTYLINE
     Indication: ANTIDEPRESSANT THERAPY
     Route: 065
  4. METOPROLOL. [Suspect]
     Active Substance: METOPROLOL
     Indication: DRUG THERAPY
     Route: 048
  5. DOXAZOSIN [Suspect]
     Active Substance: DOXAZOSIN MESYLATE
     Indication: DRUG THERAPY
     Route: 048
  6. NIFEDIPINE. [Concomitant]
     Active Substance: NIFEDIPINE
     Indication: PRODUCT USED FOR UNKNOWN INDICATION
     Dosage: NIFEDIPINE EXTENDED RELEASE
     Route: 048
  7. LOVASTATIN. [Suspect]
     Active Substance: LOVASTATIN
     Indication: HYPERLIPIDAEMIA
     Route: 065

REACTIONS (11)
  - Hyperkalaemia [Recovering/Resolving]
  - Electrocardiogram T wave peaked [Unknown]
  - Loss of consciousness [Unknown]
  - Hepatic enzyme increased [Unknown]
  - Toxicity to various agents [Unknown]
  - Hallucination, visual [Unknown]
  - Blood creatine phosphokinase increased [Unknown]
  - Fall [Unknown]
  - International normalised ratio increased [Recovering/Resolving]
  - Rhabdomyolysis [Recovering/Resolving]
  - Metabolic acidosis [Unknown]
